FAERS Safety Report 7307391-2 (Version None)
Quarter: 2011Q1

REPORT INFORMATION
  Report Type: 
  Country: None (occurrence: None)
  Receive Date: 20110223
  Receipt Date: 20110216
  Transmission Date: 20110831
  Serious: Yes (Death, Hospitalization)
  Sender: FDA-Public Use
  Company Number: PHHY2011GR12592

PATIENT
  Age: 32 Year
  Sex: Male

DRUGS (1)
  1. DEFERASIROX [Suspect]
     Indication: THALASSAEMIA BETA
     Dosage: 30 MG/KG, UNK

REACTIONS (18)
  - TACHYPNOEA [None]
  - BLOOD PRESSURE DECREASED [None]
  - METABOLIC ACIDOSIS [None]
  - CONFUSIONAL STATE [None]
  - ABDOMINAL PAIN [None]
  - PYREXIA [None]
  - HEPATIC FAILURE [None]
  - BLOOD CREATININE INCREASED [None]
  - ASPARTATE AMINOTRANSFERASE INCREASED [None]
  - BLOOD CORTISOL DECREASED [None]
  - BLOOD UREA INCREASED [None]
  - MENTAL STATUS CHANGES [None]
  - SINUS TACHYCARDIA [None]
  - BACTERIAL INFECTION [None]
  - PROCALCITONIN INCREASED [None]
  - HYPOGLYCAEMIA [None]
  - RENAL FAILURE ACUTE [None]
  - PERIPHERAL COLDNESS [None]
